FAERS Safety Report 10907110 (Version 2)
Quarter: 2017Q4

REPORT INFORMATION
  Report Type: Report from Study
  Country: CA (occurrence: CA)
  Receive Date: 20150312
  Receipt Date: 20171009
  Transmission Date: 20180320
  Serious: Yes (Other)
  Sender: FDA-Public Use
  Company Number: CA-RANBAXY-2015US-94087

PATIENT

DRUGS (2)
  1. FLECAINIDE [Suspect]
     Active Substance: FLECAINIDE
     Indication: ATRIAL FIBRILLATION
     Dosage: UNK, DAILY
     Route: 065
  2. AMIODARONE [Suspect]
     Active Substance: AMIODARONE
     Indication: ATRIAL FIBRILLATION
     Dosage: UNK, DAILY
     Route: 065

REACTIONS (1)
  - Ventricular tachycardia [Unknown]
